FAERS Safety Report 19472243 (Version 1)
Quarter: 2021Q2

REPORT INFORMATION
  Report Type: Spontaneous
  Country: US (occurrence: US)
  Receive Date: 20210629
  Receipt Date: 20210629
  Transmission Date: 20210717
  Serious: Yes (Life-Threatening, Hospitalization)
  Sender: FDA-Public Use
  Company Number: None

PATIENT
  Age: 34 Month
  Sex: Female
  Weight: 13.5 kg

DRUGS (1)
  1. ELTROMBOPAG [Suspect]
     Active Substance: ELTROMBOPAG
     Indication: IMMUNE THROMBOCYTOPENIA
     Route: 048
     Dates: start: 20210211, end: 20210615

REACTIONS (11)
  - Blood bilirubin increased [None]
  - Ammonia increased [None]
  - Dialysis [None]
  - Drug level increased [None]
  - Aspartate aminotransferase increased [None]
  - Hepatic failure [None]
  - Toxicity to various agents [None]
  - Thrombocytosis [None]
  - Liver injury [None]
  - Alanine aminotransferase increased [None]
  - Hepatic encephalopathy [None]

NARRATIVE: CASE EVENT DATE: 20210616
